FAERS Safety Report 9280896 (Version 1)
Quarter: 2013Q2

REPORT INFORMATION
  Report Type: Spontaneous
  Country: US (occurrence: None)
  Receive Date: 20130508
  Receipt Date: 20130508
  Transmission Date: 20140414
  Serious: No
  Sender: FDA-Public Use
  Company Number: None

PATIENT
  Age: 82 Year
  Sex: Male
  Weight: 68.95 kg

DRUGS (1)
  1. ZETIA [Suspect]
     Indication: BLOOD CHOLESTEROL
     Dates: start: 20130117, end: 20130126

REACTIONS (9)
  - Visual acuity reduced [None]
  - Diarrhoea [None]
  - Back pain [None]
  - Pain in extremity [None]
  - Arthralgia [None]
  - Skin burning sensation [None]
  - Vision blurred [None]
  - Malaise [None]
  - Depression [None]
